FAERS Safety Report 21604950 (Version 2)
Quarter: 2022Q4

REPORT INFORMATION
  Report Type: Spontaneous
  Country: US (occurrence: US)
  Receive Date: 20221116
  Receipt Date: 20221228
  Transmission Date: 20230113
  Serious: Yes (Other)
  Sender: FDA-Public Use
  Company Number: US-JAZZ-2022-US-035074

PATIENT
  Age: 30 Year
  Sex: Male
  Weight: 100 kg

DRUGS (1)
  1. XYWAV [Suspect]
     Active Substance: CALCIUM OXYBATE\MAGNESIUM OXYBATE\POTASSIUM OXYBATE\SODIUM OXYBATE
     Indication: Product used for unknown indication
     Dosage: UNK

REACTIONS (2)
  - Depressed level of consciousness [Unknown]
  - Urinary incontinence [Unknown]
